FAERS Safety Report 4627820-2 (Version None)
Quarter: 2005Q2

REPORT INFORMATION
  Report Type: 
  Country: None (occurrence: None)
  Receive Date: 20050406
  Receipt Date: 20050328
  Transmission Date: 20051028
  Serious: Yes (Death)
  Sender: FDA-Public Use
  Company Number: 200512561US

PATIENT
  Sex: 0

DRUGS (1)
  1. LOVENOX [Suspect]
     Indication: CATHETER PLACEMENT
     Route: 058

REACTIONS (2)
  - ARTERIAL CATHETERISATION ABNORMAL [None]
  - DEATH [None]
